FAERS Safety Report 25289088 (Version 1)
Quarter: 2025Q2

REPORT INFORMATION
  Report Type: Spontaneous
  Country: IT (occurrence: IT)
  Receive Date: 20250509
  Receipt Date: 20250509
  Transmission Date: 20250717
  Serious: Yes (Death, Hospitalization)
  Sender: SANDOZ
  Company Number: IT-SZ09-PHHY2011IT37694

PATIENT
  Age: 73 Year
  Sex: Male

DRUGS (8)
  1. ADEFOVIR DIPIVOXIL [Suspect]
     Active Substance: ADEFOVIR DIPIVOXIL
     Indication: Follicular thyroid cancer
     Route: 065
  2. ETOPOSIDE [Suspect]
     Active Substance: ETOPOSIDE
     Indication: Follicular thyroid cancer
     Route: 065
     Dates: start: 2006, end: 200703
  3. IFOSFAMIDE [Suspect]
     Active Substance: IFOSFAMIDE
     Indication: Follicular thyroid cancer
     Route: 065
     Dates: start: 2006, end: 200703
  4. LAMIVUDINE [Suspect]
     Active Substance: LAMIVUDINE
     Indication: Follicular thyroid cancer
     Route: 065
     Dates: end: 200703
  5. MITOXANTRONE [Suspect]
     Active Substance: MITOXANTRONE HYDROCHLORIDE
     Indication: Follicular thyroid cancer
     Route: 065
     Dates: start: 2006, end: 200703
  6. MESNA [Suspect]
     Active Substance: MESNA
     Indication: Follicular thyroid cancer
     Route: 065
     Dates: start: 2006, end: 200703
  7. PREDNISOLONE [Suspect]
     Active Substance: PREDNISOLONE
     Indication: Follicular thyroid cancer
     Route: 065
  8. RITUXIMAB [Suspect]
     Active Substance: RITUXIMAB
     Indication: Follicular thyroid cancer
     Route: 065
     Dates: start: 2006, end: 200703

REACTIONS (8)
  - Hepatic failure [Fatal]
  - Hepatitis B reactivation [Fatal]
  - Jaundice [Fatal]
  - Encephalopathy [Fatal]
  - Ascites [Fatal]
  - Hepatic cirrhosis [Fatal]
  - International normalised ratio increased [Unknown]
  - Drug resistance [Unknown]

NARRATIVE: CASE EVENT DATE: 20070701
